FAERS Safety Report 9513282 (Version 1)
Quarter: 2013Q1

REPORT INFORMATION
  Report Type: Spontaneous
  Country: US (occurrence: None)
  Receive Date: 20130305
  Receipt Date: 20130305
  Transmission Date: 20140127
  Serious: Yes (Other)
  Sender: FDA-Public Use
  Company Number: 163-21880-12010583

PATIENT
  Age: 78 Year
  Sex: Female
  Weight: 52.16 kg

DRUGS (7)
  1. REVLIMID [Suspect]
     Indication: PLASMA CELL MYELOMA
     Dosage: 10MG, DAILY X 21 DAYS
     Route: 048
     Dates: start: 20110713
  2. INSULIN (INSULIN) (INJECTION) [Concomitant]
  3. ASA (ACETYLSALICYLIC ACID) [Concomitant]
  4. RENAGEL (SEVELAMER HYDROCHLORIDE) [Concomitant]
  5. LEVOTHYROXIN (LEVOTHYROXINE SODIUM) [Concomitant]
  6. ISOSORBIDE (ISOSORBIDE) [Concomitant]
  7. FAMOTIDIINE (FAMOTIDINE) [Concomitant]

REACTIONS (1)
  - Pancytopenia [None]
